FAERS Safety Report 4725784-4 (Version None)
Quarter: 2005Q3

REPORT INFORMATION
  Report Type: 
  Country: None (occurrence: None)
  Receive Date: 20050725
  Receipt Date: 20050709
  Transmission Date: 20060218
  Serious: Yes (Other)
  Sender: FDA-Public Use
  Company Number: PHEH2005US07718

PATIENT
  Age: 75 Year
  Sex: Male

DRUGS (1)
  1. VISUDYNE [Suspect]
     Indication: MACULAR DEGENERATION
     Dates: start: 20020101, end: 20020101

REACTIONS (3)
  - POST PROCEDURAL COMPLICATION [None]
  - SCOTOMA [None]
  - VISUAL ACUITY REDUCED [None]
